FAERS Safety Report 18103066 (Version 1)
Quarter: 2020Q3

REPORT INFORMATION
  Report Type: Spontaneous
  Country: US (occurrence: US)
  Receive Date: 20200731
  Receipt Date: 20200731
  Transmission Date: 20201103
  Serious: Yes (Other)
  Sender: FDA-Public Use
  Company Number: None

PATIENT
  Age: 38 Year
  Sex: Male
  Weight: 95.7 kg

DRUGS (22)
  1. DEXMEDETOMIDINE. [Concomitant]
     Active Substance: DEXMEDETOMIDINE
     Dates: start: 20200727
  2. NOREPINEPHRINE. [Concomitant]
     Active Substance: NOREPINEPHRINE
     Dates: start: 20200727
  3. ROCURONIUM [Concomitant]
     Active Substance: ROCURONIUM BROMIDE
     Dates: start: 20200727, end: 20200727
  4. ENOXAPARIN [Concomitant]
     Active Substance: ENOXAPARIN
     Dates: start: 20200726
  5. FENTANYL. [Concomitant]
     Active Substance: FENTANYL
     Dates: start: 20200727
  6. MIDAZOLAM. [Concomitant]
     Active Substance: MIDAZOLAM
     Dates: start: 20200727
  7. POTASSIUM CHLORIDE. [Concomitant]
     Active Substance: POTASSIUM CHLORIDE
     Dates: start: 20200729
  8. POLYETHYLENE GLYCOL (GLYCOLAX) [Concomitant]
     Dates: start: 20200728
  9. CEFTRIAXONE. [Concomitant]
     Active Substance: CEFTRIAXONE
     Dates: start: 20200726, end: 20200730
  10. FUROSEMIDE. [Concomitant]
     Active Substance: FUROSEMIDE
     Dates: start: 20200727
  11. PERFLUTEN LIPID MICROSPHERES [Concomitant]
     Dates: start: 20200729, end: 20200729
  12. AZITHROMYCIN ANHYDROUS. [Concomitant]
     Active Substance: AZITHROMYCIN ANHYDROUS
     Dates: start: 20200726, end: 20200730
  13. LINEZOLID. [Concomitant]
     Active Substance: LINEZOLID
     Dates: start: 20200731
  14. PROPOFOL. [Concomitant]
     Active Substance: PROPOFOL
     Dates: start: 20200727
  15. VANCOMYCIN [Concomitant]
     Active Substance: VANCOMYCIN
     Dates: start: 20200729
  16. REMDESIVIR. [Suspect]
     Active Substance: REMDESIVIR
     Indication: COVID-19
     Route: 042
     Dates: start: 20200726, end: 20200730
  17. ACETAMINOPHEN. [Concomitant]
     Active Substance: ACETAMINOPHEN
     Dates: start: 20200728, end: 20200728
  18. CODEINE?GUIFENESIN [Concomitant]
     Dates: start: 20200726, end: 20200726
  19. DEXAMETHASONE. [Concomitant]
     Active Substance: DEXAMETHASONE
     Dates: start: 20200726
  20. FAMOTIDINE. [Concomitant]
     Active Substance: FAMOTIDINE
     Dates: start: 20200728
  21. MULTIVITAMIN WITH IRON [Concomitant]
     Active Substance: IRON\VITAMINS
     Dates: start: 20200727
  22. SENNOSIDES. [Concomitant]
     Active Substance: SENNOSIDES
     Dates: start: 20200728

REACTIONS (4)
  - Liver function test increased [None]
  - Acute respiratory distress syndrome [None]
  - Critical illness [None]
  - Respiratory failure [None]

NARRATIVE: CASE EVENT DATE: 20200731
